FAERS Safety Report 9382100 (Version 1)
Quarter: 2013Q3

REPORT INFORMATION
  Report Type: Spontaneous
  Country: US (occurrence: None)
  Receive Date: 20130702
  Receipt Date: 20130702
  Transmission Date: 20140515
  Serious: Yes (Death, Hospitalization)
  Sender: FDA-Public Use
  Company Number: None

PATIENT
  Age: 42 Year
  Sex: Male
  Weight: 115.9 kg

DRUGS (1)
  1. AMINOPYRIDINE, 2- [Suspect]
     Indication: MULTIPLE SCLEROSIS
     Dosage: 5MG  BID  ORAL
     Route: 048
     Dates: start: 20101207

REACTIONS (9)
  - Nervousness [None]
  - Confusional state [None]
  - Amnesia [None]
  - Paranoia [None]
  - Panic disorder [None]
  - Mental disorder [None]
  - Dysphoria [None]
  - Cognitive disorder [None]
  - Completed suicide [None]
